FAERS Safety Report 5890521-7 (Version None)
Quarter: 2008Q3

REPORT INFORMATION
  Report Type: 
  Country: None (occurrence: None)
  Receive Date: 20080922
  Receipt Date: 20080915
  Transmission Date: 20090109
  Serious: Yes (Hospitalization)
  Sender: FDA-Public Use
  Company Number: PHEH2008US08262

PATIENT

DRUGS (1)
  1. TEKTURNA [Suspect]
     Dosage: UNK

REACTIONS (4)
  - ASTHENIA [None]
  - BLOOD POTASSIUM DECREASED [None]
  - FATIGUE [None]
  - MUSCLE SPASMS [None]
